FAERS Safety Report 24087738 (Version 2)
Quarter: 2024Q4

REPORT INFORMATION
  Report Type: Spontaneous
  Country: US (occurrence: US)
  Receive Date: 20240715
  Receipt Date: 20241210
  Transmission Date: 20250115
  Serious: No
  Sender: SANOFI AVENTIS
  Company Number: US-SA-SAC20240709001240

PATIENT
  Age: 64 Year
  Sex: Female
  Weight: 117 kg

DRUGS (14)
  1. DUPIXENT [Suspect]
     Active Substance: DUPILUMAB
     Indication: Asthma
     Dosage: 300 MG, QOW
     Route: 058
     Dates: start: 20240404
  2. AZELASTINE [Concomitant]
     Active Substance: AZELASTINE
  3. FLUOXETINE [Concomitant]
     Active Substance: FLUOXETINE HYDROCHLORIDE
  4. BUPROPION [Concomitant]
     Active Substance: BUPROPION
  5. QVAR REDIHALER [Concomitant]
     Active Substance: BECLOMETHASONE DIPROPIONATE
  6. GABAPENTIN [Concomitant]
     Active Substance: GABAPENTIN
  7. METFORMIN [Concomitant]
     Active Substance: METFORMIN HYDROCHLORIDE
  8. ACYCLOVIR [Concomitant]
     Active Substance: ACYCLOVIR
  9. TERBINAFINE [Concomitant]
     Active Substance: TERBINAFINE\TERBINAFINE HYDROCHLORIDE
  10. SPIRIVA RESPIMAT [Concomitant]
     Active Substance: TIOTROPIUM BROMIDE
  11. ATORVASTATIN CALCIUM [Concomitant]
     Active Substance: ATORVASTATIN CALCIUM
  12. XHANCE [Concomitant]
     Active Substance: FLUTICASONE PROPIONATE
  13. CARVEDILOL [Concomitant]
     Active Substance: CARVEDILOL
  14. VERAPAMIL [Concomitant]
     Active Substance: VERAPAMIL HYDROCHLORIDE

REACTIONS (6)
  - COVID-19 [Unknown]
  - Pyrexia [Not Recovered/Not Resolved]
  - Skin discolouration [Unknown]
  - Cellulitis [Unknown]
  - Skin swelling [Not Recovered/Not Resolved]
  - Erythema [Unknown]

NARRATIVE: CASE EVENT DATE: 20240101
